FAERS Safety Report 6885192-7 (Version None)
Quarter: 2010Q3

REPORT INFORMATION
  Report Type: 
  Country: None (occurrence: None)
  Receive Date: 20100727
  Receipt Date: 20100715
  Transmission Date: 20110219
  Serious: Yes (Death, Hospitalization)
  Sender: FDA-Public Use
  Company Number: US-BAXTER-2010BH018228

PATIENT
  Age: 66 Year
  Sex: Female

DRUGS (1)
  1. DIANEAL [Suspect]
     Indication: PERITONEAL DIALYSIS
     Route: 033
     Dates: start: 20051013, end: 20100701

REACTIONS (2)
  - NEUROPATHY PERIPHERAL [None]
  - POST PROCEDURAL HAEMORRHAGE [None]
